FAERS Safety Report 5219050-0 (Version None)
Quarter: 2007Q1

REPORT INFORMATION
  Report Type: 
  Country: None (occurrence: None)
  Receive Date: 20070124
  Receipt Date: 20070124
  Transmission Date: 20070707
  Serious: Yes (Other)
  Sender: FDA-Public Use
  Company Number: None

PATIENT
  Age: 82 Year
  Sex: Female
  Weight: 70.3075 kg

DRUGS (1)
  1. ISOVUE-300 [Suspect]
     Indication: NEOPLASM MALIGNANT
     Dosage: 100 ML 3.5ML PER SEC CUTANEOUS
     Route: 003
     Dates: start: 20060123, end: 20060123

REACTIONS (1)
  - EXTRAVASATION [None]
